FAERS Safety Report 7342564 (Version 7)
Quarter: 2012Q4

REPORT INFORMATION
  Report Type: Report from Study
  Country: JP (occurrence: JP)
  Receive Date: 20100402
  Receipt Date: 20120927
  Transmission Date: 20130627
  Serious: Yes (Death, Life-Threatening, Hospitalization)
  Sender: FDA-Public Use
  Company Number: JP-ROCHE-694631

PATIENT
  Age: 67 Year
  Sex: Male
  Weight: 59 kg

DRUGS (18)
  1. BEVACIZUMAB [Suspect]
     Indication: LUNG ADENOCARCINOMA RECURRENT
     Route: 041
     Dates: start: 20100305, end: 20100305
  2. PEMETREXED DISODIUM [Suspect]
     Indication: LUNG ADENOCARCINOMA RECURRENT
     Dosage: DRUG REPORTED: ALIMTA (PEMETREXED SODIUM HYDRATE)
     Route: 041
     Dates: start: 20100305, end: 20100305
  3. PEMETREXED DISODIUM [Suspect]
     Dosage: Dosage is uncertain.
     Route: 041
     Dates: start: 2010, end: 2010
  4. GEFITINIB [Suspect]
     Indication: LUNG ADENOCARCINOMA RECURRENT
     Route: 048
     Dates: start: 20100513, end: 20100523
  5. CARBOPLATIN [Concomitant]
     Indication: LUNG ADENOCARCINOMA RECURRENT
     Route: 041
     Dates: start: 20100305, end: 20100305
  6. LENDORMIN [Concomitant]
     Indication: INSOMNIA
     Route: 048
     Dates: start: 20100218, end: 2010
  7. PANVITAN [Concomitant]
     Dosage: DRUG: PANVITAN (RETINOL CALCIFEROL COMBINED DRUG). DOSE FORM: POWDERED MEDICINE
     Route: 048
     Dates: start: 20100225, end: 2010
  8. ZYRTEC [Concomitant]
     Indication: RHINITIS
     Dosage: DRUG: ZYRTEC (CETRIZINE HYDROCHLORIDE)
     Route: 048
     Dates: start: 20100225, end: 2010
  9. GASMOTIN [Concomitant]
     Indication: ABDOMINAL PAIN UPPER
     Dosage: DRUG: GASMOTIN (MOSAPRIDE CITRATE)
     Route: 048
     Dates: start: 20100301, end: 2010
  10. GRANISETRON [Concomitant]
     Dosage: DRUG: GRANISETRON (GRANISETRON HYDROCHLORIDE)
     Route: 042
     Dates: start: 20100305, end: 20100305
  11. DECADRON [Concomitant]
     Dosage: DECADRON (DEXAMETHASONE SODIUM PHOSPHATE)
     Route: 042
     Dates: start: 20100305, end: 20100305
  12. LOXONIN [Concomitant]
     Indication: TUMOUR ASSOCIATED FEVER
     Dosage: Taken as needed.
     Route: 048
  13. PREDONINE [Concomitant]
     Indication: NAUSEA
     Route: 042
     Dates: start: 20100307, end: 20100308
  14. PRIMPERAN (JAPAN) [Concomitant]
     Indication: NAUSEA
     Route: 042
     Dates: start: 20100307, end: 20100308
  15. ANCHUSAN [Concomitant]
     Indication: ABDOMINAL PAIN UPPER
     Route: 048
     Dates: start: 20100311, end: 2010
  16. METEBANYL [Concomitant]
     Route: 048
     Dates: start: 20100225, end: 2010
  17. SHAKUYAKU-KANZO-TO [Concomitant]
     Indication: HICCUPS
     Route: 048
     Dates: start: 20100218, end: 2010
  18. CISPLATIN [Concomitant]
     Indication: LUNG ADENOCARCINOMA RECURRENT
     Dosage: Dosage is uncertain
     Route: 041
     Dates: start: 2010, end: 2010

REACTIONS (3)
  - Haemoptysis [Fatal]
  - Pneumothorax [Recovered/Resolved]
  - Pneumonia staphylococcal [Not Recovered/Not Resolved]
